FAERS Safety Report 13998908 (Version 1)
Quarter: 2017Q3

REPORT INFORMATION
  Report Type: Report from Study
  Country: None (occurrence: US)
  Receive Date: 20170921
  Receipt Date: 20170921
  Transmission Date: 20171128
  Serious: Yes (Hospitalization, Other)
  Sender: FDA-Public Use
  Company Number: US-ABBVIE-16K-163-1684309-00

PATIENT
  Age: 54 Year
  Sex: Male

DRUGS (3)
  1. HUMIRA [Suspect]
     Active Substance: ADALIMUMAB
     Route: 058
     Dates: start: 20170506
  2. HUMIRA [Suspect]
     Active Substance: ADALIMUMAB
     Indication: RHEUMATOID ARTHRITIS
     Dosage: DAY ONE
     Route: 058
     Dates: start: 20160617, end: 20160617
  3. HUMIRA [Suspect]
     Active Substance: ADALIMUMAB
     Route: 058
     Dates: start: 20160715, end: 20170401

REACTIONS (22)
  - Rheumatoid arthritis [Unknown]
  - Asthenia [Not Recovered/Not Resolved]
  - Joint swelling [Unknown]
  - Loss of personal independence in daily activities [Unknown]
  - Fatigue [Not Recovered/Not Resolved]
  - Joint stiffness [Recovered/Resolved]
  - Post procedural pulmonary embolism [Unknown]
  - Arthralgia [Recovered/Resolved]
  - Grip strength decreased [Unknown]
  - Joint stiffness [Recovering/Resolving]
  - Arthralgia [Recovered/Resolved]
  - Therapeutic response shortened [Unknown]
  - Post procedural complication [Unknown]
  - Weight decreased [Recovered/Resolved]
  - Joint stiffness [Recovered/Resolved]
  - Nausea [Not Recovered/Not Resolved]
  - Procedural pain [Not Recovered/Not Resolved]
  - Gait disturbance [Unknown]
  - Knee arthroplasty [Unknown]
  - Limb mass [Unknown]
  - Anticipatory anxiety [Unknown]
  - Joint effusion [Unknown]

NARRATIVE: CASE EVENT DATE: 2016
